FAERS Safety Report 8013183-1 (Version None)
Quarter: 2011Q4

REPORT INFORMATION
  Report Type: 
  Country: None (occurrence: None)
  Receive Date: 20111229
  Receipt Date: 20111222
  Transmission Date: 20120403
  Serious: Yes (Hospitalization, Other)
  Sender: FDA-Public Use
  Company Number: US-AMGEN-USASP2011061393

PATIENT
  Age: 34 Year
  Sex: Female

DRUGS (2)
  1. PRENATAL                           /00231801/ [Concomitant]
     Dosage: UNK UNK, QD
     Route: 048
  2. ENBREL [Suspect]
     Indication: RHEUMATOID ARTHRITIS
     Dosage: 50 MG, QWK
     Dates: start: 20031101

REACTIONS (3)
  - UTERINE LEIOMYOMA [None]
  - MEMORY IMPAIRMENT [None]
  - PRE-ECLAMPSIA [None]
